FAERS Safety Report 8908219 (Version 1)
Quarter: 2012Q4

REPORT INFORMATION
  Report Type: Report from Study
  Country: US (occurrence: US)
  Receive Date: 20121114
  Receipt Date: 20121114
  Transmission Date: 20130627
  Serious: Yes (Other)
  Sender: FDA-Public Use
  Company Number: US-JNJFOC-20121102059

PATIENT
  Sex: Female
  Weight: 61.24 kg

DRUGS (1)
  1. STELARA [Suspect]
     Indication: PSORIASIS
     Route: 058
     Dates: start: 201108

REACTIONS (5)
  - Impaired work ability [Not Recovered/Not Resolved]
  - Menorrhagia [Not Recovered/Not Resolved]
  - Wound [Not Recovered/Not Resolved]
  - Micturition urgency [Recovering/Resolving]
  - Dysmenorrhoea [Not Recovered/Not Resolved]
